FAERS Safety Report 10189344 (Version 5)
Quarter: 2015Q2

REPORT INFORMATION
  Report Type: Spontaneous
  Country: US (occurrence: US)
  Receive Date: 20140522
  Receipt Date: 20150528
  Transmission Date: 20150821
  Serious: Yes (Death, Hospitalization, Other)
  Sender: FDA-Public Use
  Company Number: US-MERCK-1405USA009986

PATIENT
  Sex: Female
  Weight: 109.75 kg

DRUGS (3)
  1. JANUVIA [Suspect]
     Active Substance: SITAGLIPTIN PHOSPHATE
     Indication: TYPE 2 DIABETES MELLITUS
     Dosage: 50 MG, DAILY
     Route: 048
     Dates: start: 2010, end: 20120314
  2. JANUMET [Suspect]
     Active Substance: METFORMIN HYDROCHLORIDE\SITAGLIPTIN PHOSPHATE
     Dosage: 50 MG/1000 MG, BID
     Route: 048
  3. JANUMET [Suspect]
     Active Substance: METFORMIN HYDROCHLORIDE\SITAGLIPTIN PHOSPHATE
     Indication: TYPE 2 DIABETES MELLITUS
     Dosage: 50 MG/1000 MG, QD
     Route: 048
     Dates: start: 20110413

REACTIONS (25)
  - Pancreatic carcinoma metastatic [Fatal]
  - Metastases to liver [Unknown]
  - Pancreatitis [Unknown]
  - Oral pain [Unknown]
  - Depression [Unknown]
  - Arthralgia [Unknown]
  - Cholelithiasis [Unknown]
  - Pancreatitis chronic [Not Recovered/Not Resolved]
  - Hypothyroidism [Unknown]
  - Chronic obstructive pulmonary disease [Not Recovered/Not Resolved]
  - Sickle cell anaemia [Unknown]
  - Angina pectoris [Unknown]
  - Essential hypertension [Unknown]
  - Erythema annulare [Unknown]
  - Cardiac failure congestive [Unknown]
  - Emphysema [Unknown]
  - Inappropriate schedule of drug administration [Unknown]
  - Metastases to lymph nodes [Unknown]
  - Arteriosclerosis [Unknown]
  - Hepatomegaly [Unknown]
  - Osteoarthritis [Unknown]
  - Pulmonary mass [Unknown]
  - Malignant ascites [Unknown]
  - Confusional state [Unknown]
  - Hepatic steatosis [Unknown]

NARRATIVE: CASE EVENT DATE: 20100311
